FAERS Safety Report 8472793 (Version 9)
Quarter: 2013Q1

REPORT INFORMATION
  Report Type: Report from Study
  Country: IN (occurrence: IN)
  Receive Date: 20120322
  Receipt Date: 20130325
  Transmission Date: 20140127
  Serious: Yes (Hospitalization, Other)
  Sender: FDA-Public Use
  Company Number: IN-ABBOTT-11P-078-0834565-00

PATIENT
  Age: 46 Year
  Sex: Female
  Weight: 39 kg

DRUGS (66)
  1. RITONAVIR SOFT GELATIN CAPSULES [Suspect]
     Indication: HIV INFECTION
     Route: 048
     Dates: start: 20080922, end: 20100325
  2. RITONAVIR SOFT GELATIN CAPSULES [Suspect]
     Route: 048
     Dates: start: 20100326, end: 20100802
  3. RITONAVIR SOFT GELATIN CAPSULES [Suspect]
     Dates: start: 20100811
  4. EFAVIRENZ [Concomitant]
     Indication: HIV INFECTION
     Route: 048
     Dates: start: 20070309, end: 20080921
  5. ATAZANAVIR SULFATE [Concomitant]
     Indication: HIV INFECTION
     Route: 048
     Dates: start: 20080922, end: 20110719
  6. ATAZANAVIR SULFATE [Concomitant]
     Dates: start: 20120224
  7. LAMIVUDINE + ZIDOVUDINE [Concomitant]
     Indication: HIV INFECTION
     Dosage: 150/300 MG
     Route: 048
     Dates: start: 20070309, end: 20100802
  8. LAMIVUDINE + ZIDOVUDINE [Concomitant]
     Route: 048
     Dates: start: 20080922, end: 20100802
  9. LAMIVUDINE + ZIDOVUDINE [Concomitant]
  10. TENOFOVIR DISOPROXIL FUMARATE [Concomitant]
     Indication: HIV INFECTION
     Route: 048
     Dates: start: 20080922, end: 20100802
  11. TENOFOVIR DF + EMTRICITABINE [Concomitant]
     Indication: HIV INFECTION
     Dosage: 200/300 MILLIGRAM
     Route: 048
     Dates: start: 20100811, end: 20110719
  12. TENOFOVIR DF + EMTRICITABINE [Concomitant]
     Dates: start: 20111230
  13. HYDROXYZINE HCL [Concomitant]
     Indication: PRODUCT USED FOR UNKNOWN INDICATION
     Dates: start: 20110520
  14. AMOROLFINE HYDROCHLORIDE [Concomitant]
     Indication: PRODUCT USED FOR UNKNOWN INDICATION
     Dates: start: 20110520
  15. VITAMIN B12 15 MCG, FERROUS FUMARATE 0.3G, FOLIC ACID 1.5 MG [Concomitant]
     Indication: ROUTINE HEALTH MAINTENANCE
     Dosage: CAP
     Dates: start: 20101129
  16. TRIMETHOPRIM 160 MG, SULPHAMETHAXAZOLE 800 MG [Concomitant]
     Indication: ROUTINE HEALTH MAINTENANCE
     Dosage: TAB
     Dates: start: 20101129
  17. VITAMIN B12 [Concomitant]
     Indication: PRODUCT USED FOR UNKNOWN INDICATION
     Dates: start: 20101129
  18. FERROUS FUMARATE [Concomitant]
     Indication: PRODUCT USED FOR UNKNOWN INDICATION
     Dates: start: 20101129
  19. FOLIC ACID [Concomitant]
     Indication: PRODUCT USED FOR UNKNOWN INDICATION
     Dates: start: 20101129
  20. PARACETAMOL [Concomitant]
     Indication: HEADACHE
     Dosage: TABLET
     Dates: start: 20110909, end: 20110909
  21. PARACETAMOL [Concomitant]
     Indication: ARTHRALGIA
     Dates: start: 20110923, end: 20110929
  22. PARACETAMOL [Concomitant]
     Indication: PYREXIA
     Dates: start: 20111007
  23. LAMIVUDINE + ADEFOVIR DIPIVOXIL [Concomitant]
     Indication: HIV INFECTION
     Dates: start: 20111230, end: 20120208
  24. LAMIVUDINE + ADEFOVIR DIPIVOXIL [Concomitant]
     Dates: start: 20120208, end: 20120211
  25. LAMIVUDINE + ADEFOVIR DIPIVOXIL [Concomitant]
     Dates: start: 20120211
  26. DIDANOSINE [Concomitant]
     Indication: HIV INFECTION
     Dates: start: 20120320
  27. TERBUTALINE EXPECTORANT [Concomitant]
     Indication: COUGH
     Dates: start: 20120208
  28. OTHER BLOOD PRODUCTS [Concomitant]
     Indication: ANAEMIA
     Dates: start: 20120209, end: 20120209
  29. OTHER BLOOD PRODUCTS [Concomitant]
     Dates: start: 20120210, end: 20120211
  30. PYRIDOXINE W/THIAMINE [Concomitant]
     Indication: PROPHYLAXIS
     Dates: start: 20120212, end: 20120212
  31. PYRIDOXINE W/THIAMINE [Concomitant]
     Indication: NEUROPATHY PERIPHERAL
  32. OXETHAZINE, AI(OH3), MGSOL [Concomitant]
     Indication: PROPHYLAXIS OF NAUSEA AND VOMITING
     Route: 048
     Dates: start: 20120210
  33. OXETHAZINE, AI(OH3), MGSOL [Concomitant]
     Indication: PROPHYLAXIS OF NAUSEA AND VOMITING
  34. SYP TERBUTALINE+BROMOXHEYINE+GUAPHENSION [Concomitant]
     Indication: PRODUCTIVE COUGH
     Dosage: 2-5MG + 8MG + 100MG
     Dates: start: 20120223
  35. CLARITHROMYCIN [Concomitant]
     Indication: DRUG HYPERSENSITIVITY
     Dates: start: 20120223
  36. LIG PARAFIN+MAGNESIUM HYDROXIDE [Concomitant]
     Indication: DRUG HYPERSENSITIVITY
     Dosage: 3.75MG + 11.25/15 ML
     Dates: start: 20120223
  37. LIG PARAFIN+MAGNESIUM HYDROXIDE [Concomitant]
     Indication: CONSTIPATION
  38. LIGNOCAINE [Concomitant]
     Indication: DRUG HYPERSENSITIVITY
     Dosage: GEL
     Dates: start: 20120223
  39. NEBULIZATION W/ IPROTROPIUM BROMIDE+LEVASALBUTAMOL [Concomitant]
     Indication: DRUG HYPERSENSITIVITY
     Dosage: 500MCG + 1.25 MG/2.5 ML
     Dates: start: 20120223
  40. NEBULIZATION W/ BUDESONIDE [Concomitant]
     Indication: DRUG HYPERSENSITIVITY
     Dates: start: 20120223
  41. DEXTROSE W/ NS+INS THIAMINE+PYRIDOXINE [Concomitant]
     Indication: DRUG HYPERSENSITIVITY
     Dosage: 100MG + 100 MG
     Dates: start: 20120223
  42. TRAMADOL HYDROCHLORIDE [Concomitant]
     Indication: DRUG HYPERSENSITIVITY
     Dates: start: 20120224
  43. SEITZ BATH W/ KMNO4 [Concomitant]
     Indication: DRUG HYPERSENSITIVITY
     Dates: start: 20120225
  44. BECLOMETHASONE DIPROPIONATW/W+PHENYLEPHRINE+LIDO [Concomitant]
     Indication: DRUG HYPERSENSITIVITY
     Dosage: 0.025% + 0.1% + 2.5%
     Dates: start: 20120225
  45. DISODIUM HYDROGEN CITRATE [Concomitant]
     Indication: DRUG HYPERSENSITIVITY
     Dosage: 1.37GM / 5ML
     Dates: start: 20120225
  46. HEPARIN SODIUM BENZYL NICOTINATE [Concomitant]
     Indication: DRUG HYPERSENSITIVITY
     Dosage: 50 IU + 2MG/1GM
     Dates: start: 20120228
  47. MAGNESIUM SULPHATE [Concomitant]
     Indication: DRUG HYPERSENSITIVITY
     Dates: start: 20120228
  48. DICLOFENAC SODIUM [Concomitant]
     Indication: ARTHRALGIA
     Dates: start: 20120303
  49. DEXTROMETHORPHAN+TRIPROLIDINE HCL [Concomitant]
     Indication: COUGH
     Dosage: 10MG + 1.25MG/5ML
     Dates: start: 20120303
  50. FERRIC AMMONIUM CITRATE+CYANOCOBALAMIN+FOLIC ACID [Concomitant]
     Indication: ROUTINE HEALTH MAINTENANCE
     Dosage: 160MG + 7.5 MCG + 0.5MG/ML
     Dates: start: 20120320
  51. SODIUM BICARBONATE [Concomitant]
     Indication: RENAL IMPAIRMENT
     Dates: start: 20120402
  52. CASTOR OIL+GLYCERINE+ZINC OXIDE [Concomitant]
     Indication: PRURITUS
     Dates: start: 20120402
  53. TERBUTALINE SULPHATE+GUAPENSIN+BROMHEXINE [Concomitant]
     Indication: COUGH
     Dosage: 1.25MG + 50MG + 2MG/5ML
     Dates: start: 20120426
  54. DEXTROMETHORPHEN+CHLROPHENARAMINE MALATE [Concomitant]
     Indication: COUGH
     Dosage: 10MG + 2MG/5ML
     Dates: start: 20120509
  55. DICYCLOMINE HYDROCHLORIDE [Concomitant]
     Indication: ABDOMINAL PAIN
     Dates: start: 20120922
  56. SIMETHICONE [Concomitant]
     Indication: ABDOMINAL PAIN
     Dates: start: 20120922
  57. SUP PIPER LONGUM+CYPERUS SCAREOSUS+EUMEVUM CYMENUM [Concomitant]
     Indication: DECREASED APPETITE
     Dates: start: 20121213, end: 20121218
  58. SUP ALUMINIUM HYDROXIDE+MAGNESIUM HYDROXIDE+DEMETHICONE [Concomitant]
     Indication: PROPHYLAXIS
     Dates: start: 20121213, end: 20121218
  59. SUP ALUMINIUM HYDROXIDE+MAGNESIUM HYDROXIDE+DEMETHICONE [Concomitant]
     Indication: GASTRITIS
     Dates: start: 20130102, end: 20130107
  60. SUP CYPROHEPTADINE [Concomitant]
     Indication: DECREASED APPETITE
     Dates: start: 20130102, end: 20130111
  61. SODIUM CHLORIDE+POTASSIUM CHLORIDE+DOSIUM CITRATE [Concomitant]
     Indication: VITAMIN SUPPLEMENTATION
     Dates: start: 20130102, end: 20130104
  62. GLUCOSE+CALCIUM PHOSPHATE+VITAMIN D [Concomitant]
     Indication: VITAMIN SUPPLEMENTATION
     Dosage: POWDER
     Dates: start: 20130205
  63. CEFTRIAXONE [Concomitant]
     Indication: SINUSITIS
     Dates: start: 20130115, end: 20130123
  64. RABEPRAZOLE [Concomitant]
     Indication: SINUSITIS
     Dates: start: 20130115, end: 20130123
  65. ONDASETRON [Concomitant]
     Indication: SINUSITIS
     Dates: start: 20130115, end: 20130123
  66. ELEMENTAL IRON+FOLIC ACID [Concomitant]
     Indication: SINUSITIS
     Dates: start: 20130115, end: 20130123

REACTIONS (8)
  - Virologic failure [Unknown]
  - Extrapulmonary tuberculosis [Not Recovered/Not Resolved]
  - Anaemia [Not Recovered/Not Resolved]
  - Lower respiratory tract infection [Recovered/Resolved]
  - Pulmonary tuberculosis [Not Recovered/Not Resolved]
  - HIV peripheral neuropathy [Unknown]
  - Drug hypersensitivity [Unknown]
  - Cytomegalovirus chorioretinitis [Not Recovered/Not Resolved]
